APPROVED DRUG PRODUCT: GLYCOPYRROLATE
Active Ingredient: GLYCOPYRROLATE
Strength: 0.2MG/ML
Dosage Form/Route: INJECTABLE;INJECTION
Application: A210246 | Product #001
Applicant: APOTEX INC
Approved: Oct 29, 2019 | RLD: No | RS: No | Type: DISCN